FAERS Safety Report 13009590 (Version 1)
Quarter: 2016Q4

REPORT INFORMATION
  Report Type: Spontaneous
  Country: GB (occurrence: GB)
  Receive Date: 20161208
  Receipt Date: 20161208
  Transmission Date: 20170207
  Serious: Yes (Death, Other)
  Sender: FDA-Public Use
  Company Number: GB-JNJFOC-20161206152

PATIENT
  Age: 67 Year
  Sex: Male

DRUGS (1)
  1. XARELTO [Suspect]
     Active Substance: RIVAROXABAN
     Indication: ATRIAL FIBRILLATION
     Route: 048
     Dates: start: 20160822, end: 20160823

REACTIONS (2)
  - Cerebral haematoma [Fatal]
  - Hydrocephalus [Unknown]

NARRATIVE: CASE EVENT DATE: 20160822
